FAERS Safety Report 24669017 (Version 1)
Quarter: 2024Q4

REPORT INFORMATION
  Report Type: Spontaneous
  Country: CA (occurrence: CA)
  Receive Date: 20241127
  Receipt Date: 20241127
  Transmission Date: 20250115
  Serious: Yes (Hospitalization, Other)
  Sender: Atnahs Healthcare
  Company Number: CA-MLMSERVICE-20240705-PI124196-00233-1

PATIENT
  Age: 7 Year
  Sex: Male

DRUGS (3)
  1. NAPROXEN [Suspect]
     Active Substance: NAPROXEN
     Indication: Juvenile idiopathic arthritis
     Dosage: 250MG FREQUENCY TIME : 12 FREQUENCY TIME UNIT : HOURS
  2. ADVIL [Concomitant]
     Active Substance: IBUPROFEN
     Indication: Arthralgia
     Dosage: 3?/DAY FOR THE PAST 4?6 WEEKS
  3. ADVIL [Concomitant]
     Active Substance: IBUPROFEN
     Indication: Juvenile idiopathic arthritis

REACTIONS (4)
  - Microcytic anaemia [Unknown]
  - Iron deficiency [Unknown]
  - Gastrointestinal haemorrhage [Unknown]
  - Hypophagia [Unknown]
